FAERS Safety Report 6427851-6 (Version None)
Quarter: 2009Q4

REPORT INFORMATION
  Report Type: 
  Country: None (occurrence: None)
  Receive Date: 20091105
  Receipt Date: 20091026
  Transmission Date: 20100525
  Serious: Yes (Other)
  Sender: FDA-Public Use
  Company Number: JP-JNJFOC-20091004479

PATIENT
  Sex: Female

DRUGS (8)
  1. REMICADE [Suspect]
     Indication: RHEUMATOID ARTHRITIS
     Dosage: RECEIVED A TOTAL OF 5 DOSES; DOSE ALSO REPORTED AS 120 MG
     Route: 042
     Dates: start: 20090203, end: 20090701
  2. EVISTA [Concomitant]
     Indication: OSTEOPOROSIS
     Route: 048
  3. GASMOTIN [Concomitant]
     Indication: ABDOMINAL DISTENSION
     Route: 048
  4. BERIZYM [Concomitant]
     Indication: GASTRITIS
     Route: 048
  5. WARKMIN [Concomitant]
     Indication: OSTEOPOROSIS
     Route: 048
  6. LOXONIN [Concomitant]
     Indication: RHEUMATOID ARTHRITIS
     Route: 048
  7. RHEUMATREX [Concomitant]
     Indication: RHEUMATOID ARTHRITIS
     Route: 048
  8. FOLIAMIN [Concomitant]
     Indication: ANAEMIA PROPHYLAXIS
     Route: 048

REACTIONS (3)
  - AUTOANTIBODY POSITIVE [None]
  - HYPERGAMMAGLOBULINAEMIA [None]
  - PYREXIA [None]
